FAERS Safety Report 24142974 (Version 1)
Quarter: 2024Q3

REPORT INFORMATION
  Report Type: Spontaneous
  Country: US (occurrence: US)
  Receive Date: 20240726
  Receipt Date: 20240726
  Transmission Date: 20241017
  Serious: Yes (Other)
  Sender: VIIV
  Company Number: US-VIIV HEALTHCARE LIMITED-US2024091119

PATIENT

DRUGS (1)
  1. VOCABRIA [Suspect]
     Active Substance: CABOTEGRAVIR SODIUM
     Indication: Product used for unknown indication
     Dosage: UNK
     Dates: start: 202403, end: 2024

REACTIONS (1)
  - Renal failure [Unknown]

NARRATIVE: CASE EVENT DATE: 20240301
